FAERS Safety Report 8539375 (Version 7)
Quarter: 2014Q3

REPORT INFORMATION
  Report Type: Report from Study
  Country: CA (occurrence: CA)
  Receive Date: 20120501
  Receipt Date: 20140926
  Transmission Date: 20150326
  Serious: Yes (Hospitalization)
  Sender: FDA-Public Use
  Company Number: CA-ROCHE-1061904

PATIENT
  Age: 64 Year
  Sex: Female
  Weight: 56.7 kg

DRUGS (6)
  1. TRAMADOL HYDROCHLORIDE. [Concomitant]
     Active Substance: TRAMADOL HYDROCHLORIDE
     Route: 065
     Dates: start: 20110722
  2. STEMETIL [Concomitant]
     Active Substance: PROCHLORPERAZINE MALEATE
     Route: 065
     Dates: start: 20111006
  3. RETIN-A [Concomitant]
     Active Substance: TRETINOIN
     Dosage: 0.05% CREAM PRN / %
     Route: 065
     Dates: start: 20111006
  4. VEMURAFENIB [Suspect]
     Active Substance: VEMURAFENIB
     Indication: MALIGNANT MELANOMA
     Dosage: DATE OF LAST DOSE PRIOR TO EVENT: 09/APR/2012
     Route: 048
     Dates: start: 20110908
  5. ZOPICLONE [Concomitant]
     Active Substance: ZOPICLONE
     Route: 065
     Dates: start: 20101111
  6. OXYCODONE HYDROCHLORIDE. [Concomitant]
     Active Substance: OXYCODONE HYDROCHLORIDE
     Route: 065
     Dates: start: 20100801

REACTIONS (1)
  - Atrial fibrillation [Recovered/Resolved]

NARRATIVE: CASE EVENT DATE: 20120410
